FAERS Safety Report 8605040 (Version 3)
Quarter: 2013Q2

REPORT INFORMATION
  Report Type: Spontaneous
  Country: US (occurrence: US)
  Receive Date: 20120608
  Receipt Date: 20130429
  Transmission Date: 20140414
  Serious: No
  Sender: FDA-Public Use
  Company Number: US-ASTRAZENECA-2011SE26595

PATIENT
  Age: 68 Year
  Sex: Male

DRUGS (2)
  1. SEROQUEL [Suspect]
     Route: 048
  2. SEROQUEL [Suspect]
     Dosage: GENERIC
     Route: 048

REACTIONS (8)
  - Diabetes mellitus [Unknown]
  - Insomnia [Unknown]
  - Confusional state [Unknown]
  - Adverse drug reaction [Unknown]
  - Tardive dyskinesia [Unknown]
  - Tremor [Unknown]
  - Drug hypersensitivity [Unknown]
  - Drug dose omission [Unknown]
